FAERS Safety Report 25575183 (Version 1)
Quarter: 2025Q3

REPORT INFORMATION
  Report Type: Spontaneous
  Country: GB (occurrence: GB)
  Receive Date: 20250718
  Receipt Date: 20250718
  Transmission Date: 20251021
  Serious: Yes (Congenital Anomaly, Other)
  Sender: BIOVITRUM
  Company Number: GB-BIOVITRUM-2025-GB-009870

PATIENT
  Sex: Male

DRUGS (1)
  1. ANAKINRA [Suspect]
     Active Substance: ANAKINRA
     Indication: Product used for unknown indication
     Route: 064

REACTIONS (4)
  - Hypospadias [Unknown]
  - Cardiomyopathy [Unknown]
  - Maternal exposure during pregnancy [Recovered/Resolved]
  - Congenital anomaly [Unknown]
